FAERS Safety Report 5946712-X (Version None)
Quarter: 2008Q4

REPORT INFORMATION
  Report Type: 
  Country: None (occurrence: None)
  Receive Date: 20081110
  Receipt Date: 20081003
  Transmission Date: 20090506
  Serious: No
  Sender: FDA-Public Use
  Company Number: A0750470A

PATIENT
  Age: 7 Year
  Sex: Female

DRUGS (2)
  1. ALTABAX [Suspect]
     Indication: STREPTOCOCCAL INFECTION
     Dosage: 1APP TWICE PER DAY
     Route: 061
     Dates: start: 20080927, end: 20080929
  2. AMOXICILLIN [Concomitant]

REACTIONS (3)
  - APPLICATION SITE ERYTHEMA [None]
  - APPLICATION SITE IRRITATION [None]
  - APPLICATION SITE PRURITUS [None]
